FAERS Safety Report 16917649 (Version 3)
Quarter: 2019Q4

REPORT INFORMATION
  Report Type: Report from Study
  Country: None (occurrence: JP)
  Receive Date: 20191015
  Receipt Date: 20191211
  Transmission Date: 20200122
  Serious: Yes (Hospitalization)
  Sender: FDA-Public Use
  Company Number: JP-ABBVIE-19S-087-2812266-00

PATIENT
  Age: 86 Year
  Sex: Female
  Weight: 40 kg

DRUGS (20)
  1. DUODOPA [Suspect]
     Active Substance: CARBIDOPA\LEVODOPA
     Dosage: MD: 5 ML?CD: 1.4 ML/HR ? 14 HRS?ED: 1.5 ML/UNIT ? 4 TIMES
     Route: 050
     Dates: start: 20190423, end: 20190423
  2. MOSAPRIDE CITRATE [Concomitant]
     Active Substance: MOSAPRIDE CITRATE
     Indication: PROPHYLAXIS
     Route: 048
     Dates: start: 20190413
  3. DUODOPA [Suspect]
     Active Substance: CARBIDOPA\LEVODOPA
     Dosage: MD: 5 ML?CD: 1.6 ML/HR ? 14 HRS?ED: 1 ML/UNIT ? 3 TIMES
     Route: 050
     Dates: start: 20190508, end: 20190512
  4. RACOL [Concomitant]
     Active Substance: AMINO ACIDS\DEXTROSE\ELECTROLYTES NOS
     Dosage: DAILY DOSE: 2 PACKS
     Route: 065
     Dates: start: 20190521, end: 20190703
  5. DUODOPA [Suspect]
     Active Substance: CARBIDOPA\LEVODOPA
     Dosage: MD: 4.5 ML?CD: 1.4 ML/HR ? 13 HRS?ED: 1.5 ML/UNIT ? 3 TIMES
     Route: 050
     Dates: start: 20190420, end: 20190422
  6. DUODOPA [Suspect]
     Active Substance: CARBIDOPA\LEVODOPA
     Dosage: MD: 5 ML?CD: 1.8 ML/HR ? 14 HRS
     Route: 050
     Dates: start: 20190513, end: 20190516
  7. DONEPEZIL HYDROCHLORIDE. [Concomitant]
     Active Substance: DONEPEZIL HYDROCHLORIDE
     Indication: PRODUCT USED FOR UNKNOWN INDICATION
     Route: 048
  8. DUODOPA [Suspect]
     Active Substance: CARBIDOPA\LEVODOPA
     Dosage: MD: 4 ML?CD: 1.4 ML/HR ? 13 HRS?ED: 1.1 ML/UNIT ? 3 TIMES
     Route: 050
     Dates: start: 20190419, end: 20190419
  9. DUODOPA [Suspect]
     Active Substance: CARBIDOPA\LEVODOPA
     Dosage: MD: 5 ML?CD: 1.8 ML/HR ? 10 HRS
     Route: 050
     Dates: start: 20190517, end: 20190517
  10. RACOL [Concomitant]
     Active Substance: AMINO ACIDS\DEXTROSE\ELECTROLYTES NOS
     Indication: PRODUCT USED FOR UNKNOWN INDICATION
     Dosage: DAILY DOSE: 2 PACKS
     Route: 065
     Dates: start: 20190413, end: 20190414
  11. RACOL [Concomitant]
     Active Substance: AMINO ACIDS\DEXTROSE\ELECTROLYTES NOS
     Dosage: DAILY DOSE: 4 PACKS
     Route: 065
     Dates: start: 20190704
  12. DUODOPA [Suspect]
     Active Substance: CARBIDOPA\LEVODOPA
     Indication: PARKINSON^S DISEASE
     Dosage: MD: 4 ML?CD: 1.4 ML/HR ? 12 HRS?ED: 1 ML/UNIT ? 2 TIMES
     Route: 050
     Dates: start: 20190412, end: 20190418
  13. DUODOPA [Suspect]
     Active Substance: CARBIDOPA\LEVODOPA
     Dosage: MD: 5 ML?CD: 1.4 ML/HR ? 8 HRS?ED: 1.5 ML/UNIT ? 2 TIMES
     Route: 050
     Dates: start: 20190424, end: 20190424
  14. DUODOPA [Suspect]
     Active Substance: CARBIDOPA\LEVODOPA
     Dosage: MD: 5 ML?CD: 1.6 ML/HR ? 14 HRS
     Route: 050
     Dates: start: 20190425, end: 20190507
  15. DUODOPA [Suspect]
     Active Substance: CARBIDOPA\LEVODOPA
     Dosage: MD: 5 ML?CD: 1.6 ML/HR ? 4 HRS
     Route: 050
     Dates: start: 20190517, end: 20190517
  16. ALFACALCIDOL [Concomitant]
     Active Substance: ALFACALCIDOL
     Indication: PRODUCT USED FOR UNKNOWN INDICATION
     Route: 048
     Dates: end: 20190413
  17. RACOL [Concomitant]
     Active Substance: AMINO ACIDS\DEXTROSE\ELECTROLYTES NOS
     Dosage: DAILY DOSE: 4 PACKS
     Route: 065
     Dates: start: 20190415, end: 20190520
  18. DUODOPA [Suspect]
     Active Substance: CARBIDOPA\LEVODOPA
     Dosage: MD: 5 ML?CD: 1.6 ML/HR ? 6 HRS
     Route: 050
     Dates: start: 20190424, end: 20190424
  19. DUODOPA [Suspect]
     Active Substance: CARBIDOPA\LEVODOPA
     Dosage: MD: 5 ML?CD: 1.6 ML/HR ? 14 HRS
     Route: 050
     Dates: start: 20190518
  20. BROTIZOLAM [Concomitant]
     Active Substance: BROTIZOLAM
     Indication: PRODUCT USED FOR UNKNOWN INDICATION
     Route: 048

REACTIONS (11)
  - Blood pressure increased [Recovering/Resolving]
  - Fracture [Unknown]
  - Device kink [Unknown]
  - Nausea [Recovered/Resolved]
  - Chest discomfort [Recovered/Resolved]
  - Device breakage [Recovered/Resolved]
  - Fall [Unknown]
  - Dysphonia [Unknown]
  - Occult blood [Unknown]
  - Constipation [Recovering/Resolving]
  - Stoma site hypergranulation [Recovered/Resolved]

NARRATIVE: CASE EVENT DATE: 2019
